FAERS Safety Report 18322645 (Version 2)
Quarter: 2021Q2

REPORT INFORMATION
  Report Type: Spontaneous
  Country: US (occurrence: US)
  Receive Date: 20200929
  Receipt Date: 20210520
  Transmission Date: 20210717
  Serious: Yes (Other)
  Sender: FDA-Public Use
  Company Number: US-PFIZER INC-2020373572

PATIENT
  Age: 67 Year
  Sex: Male
  Weight: 66 kg

DRUGS (8)
  1. SUFENTANIL CITRATE. [Suspect]
     Active Substance: SUFENTANIL CITRATE
     Dosage: UNK (MAINTAINED)
  2. SUFENTANIL CITRATE. [Suspect]
     Active Substance: SUFENTANIL CITRATE
     Indication: ANAESTHESIA
     Dosage: 0.04 MG WAS ADMINISTERED OVER 5 MIN (0.01?MG INCREMENTS)
  3. MEPERIDINE [Concomitant]
     Active Substance: MEPERIDINE
     Indication: PREOPERATIVE CARE
     Dosage: 50 MG
     Route: 030
  4. PANCURONIUM [Concomitant]
     Active Substance: PANCURONIUM
     Indication: MUSCULOSKELETAL DISORDER PROPHYLAXIS
     Dosage: 1 MG
     Route: 042
  5. METOCLOPRAMIDE. [Concomitant]
     Active Substance: METOCLOPRAMIDE
     Dosage: 10 MG, 2X/DAY
  6. RANITIDINE. [Concomitant]
     Active Substance: RANITIDINE
     Dosage: 150 MG, 2X/DAY
  7. HYDROXYZINE [Concomitant]
     Active Substance: HYDROXYZINE HYDROCHLORIDE
     Indication: PREOPERATIVE CARE
     Dosage: 25 MG
     Route: 030
  8. GLYCOPYRROLATE [GLYCOPYRRONIUM] [Concomitant]
     Active Substance: GLYCOPYRRONIUM
     Indication: PREOPERATIVE CARE
     Dosage: 0.2 MG
     Route: 030

REACTIONS (4)
  - Gaze palsy [Recovered/Resolved]
  - Unresponsive to stimuli [Recovered/Resolved]
  - Nystagmus [Recovered/Resolved]
  - Generalised tonic-clonic seizure [Recovered/Resolved]
